FAERS Safety Report 7635489-8 (Version None)
Quarter: 2011Q3

REPORT INFORMATION
  Report Type: 
  Country: None (occurrence: None)
  Receive Date: 20110726
  Receipt Date: 20110726
  Transmission Date: 20111222
  Serious: Yes (Other)
  Sender: FDA-Public Use
  Company Number: None

PATIENT
  Age: 54 Year
  Sex: Male
  Weight: 77.11 kg

DRUGS (5)
  1. LAMOTRIGINE [Concomitant]
     Indication: DEPRESSION
     Dosage: 300 MG
     Route: 048
     Dates: start: 20110314, end: 20110615
  2. LOVAZA [Concomitant]
     Route: 048
  3. LESCOL XL [Concomitant]
     Route: 048
  4. AMITRIPTYLINE HCL [Concomitant]
     Route: 048
  5. LAMICTAL [Suspect]
     Indication: DEPRESSION
     Dosage: 300 MG
     Route: 048
     Dates: start: 20090313, end: 20110313

REACTIONS (8)
  - DIPLOPIA [None]
  - DYSSTASIA [None]
  - AGEUSIA [None]
  - GAIT DISTURBANCE [None]
  - SENSORY DISTURBANCE [None]
  - TOXICITY TO VARIOUS AGENTS [None]
  - PRODUCT SUBSTITUTION ISSUE [None]
  - DRUG INEFFECTIVE [None]
